FAERS Safety Report 11213522 (Version 2)
Quarter: 2015Q3

REPORT INFORMATION
  Report Type: Spontaneous
  Country: VE (occurrence: VE)
  Receive Date: 20150623
  Receipt Date: 20150702
  Transmission Date: 20151125
  Serious: Yes (Hospitalization, Other)
  Sender: FDA-Public Use
  Company Number: PHHY2015VE074332

PATIENT
  Age: 43 Year
  Sex: Male
  Weight: 101 kg

DRUGS (9)
  1. INSULIN [Concomitant]
     Active Substance: INSULIN NOS
     Indication: TYPE 2 DIABETES MELLITUS
     Route: 065
     Dates: start: 201205
  2. BISOPROLOL [Concomitant]
     Active Substance: BISOPROLOL
     Indication: PRODUCT USED FOR UNKNOWN INDICATION
     Route: 065
  3. TASIGNA [Suspect]
     Active Substance: NILOTINIB
     Indication: CHRONIC MYELOID LEUKAEMIA
     Dosage: 400 MG, BID
     Route: 048
     Dates: start: 20080917, end: 20150601
  4. HYDROCHLOROTHIAZIDE. [Concomitant]
     Active Substance: HYDROCHLOROTHIAZIDE
     Indication: PRODUCT USED FOR UNKNOWN INDICATION
     Route: 065
  5. CLOPIDOGREL [Concomitant]
     Active Substance: CLOPIDOGREL BISULFATE
     Indication: PRODUCT USED FOR UNKNOWN INDICATION
     Route: 065
  6. EUGLUCON [Concomitant]
     Active Substance: GLYBURIDE
     Indication: PRODUCT USED FOR UNKNOWN INDICATION
     Route: 065
     Dates: start: 201205
  7. HUMULIN 70/30 [Concomitant]
     Active Substance: INSULIN HUMAN
     Indication: PRODUCT USED FOR UNKNOWN INDICATION
     Route: 065
  8. METFORMIN [Concomitant]
     Active Substance: METFORMIN HYDROCHLORIDE
     Indication: PRODUCT USED FOR UNKNOWN INDICATION
     Route: 065
  9. LOSARTAN. [Concomitant]
     Active Substance: LOSARTAN
     Indication: PRODUCT USED FOR UNKNOWN INDICATION
     Route: 065

REACTIONS (20)
  - Nephrolithiasis [Unknown]
  - Pyelonephritis [Unknown]
  - Pollakiuria [Unknown]
  - Peripheral arterial occlusive disease [Unknown]
  - Polyuria [Unknown]
  - Blood glucose increased [Unknown]
  - Confusional state [Unknown]
  - Blood triglycerides increased [Unknown]
  - Hyperlipidaemia [Unknown]
  - Arthralgia [Unknown]
  - Fatigue [Unknown]
  - Amoebic dysentery [Unknown]
  - Cerebral small vessel ischaemic disease [Unknown]
  - Vascular occlusion [Unknown]
  - Blood cholesterol increased [Unknown]
  - Hypertension [Unknown]
  - Pain in extremity [Unknown]
  - Disorientation [Unknown]
  - Obesity [Unknown]
  - Headache [Unknown]

NARRATIVE: CASE EVENT DATE: 20090817
